FAERS Safety Report 7085661-3 (Version None)
Quarter: 2010Q4

REPORT INFORMATION
  Report Type: 
  Country: None (occurrence: None)
  Receive Date: 20101001
  Receipt Date: 20100803
  Transmission Date: 20110411
  Serious: No
  Sender: FDA-Public Use
  Company Number: 1000014881

PATIENT
  Age: 74 Year
  Sex: Male

DRUGS (8)
  1. BYSTOLIC [Suspect]
     Indication: HYPERTENSION
     Dosage: 5 MG (5 MG, 1 IN 1 D), ORAL
     Route: 048
     Dates: start: 20100611, end: 20100625
  2. PLAVIX [Concomitant]
  3. LISINOPRIL [Concomitant]
  4. IMDUR [Concomitant]
  5. SIMVASTATIN [Concomitant]
  6. TRIAMTERENE AND HYDROCHLOROTHIAZIDE [Concomitant]
  7. ASPIRIN [Concomitant]
  8. RANITIDINE [Concomitant]

REACTIONS (2)
  - FATIGUE [None]
  - VISION BLURRED [None]
